FAERS Safety Report 5295674-X (Version None)
Quarter: 2007Q2

REPORT INFORMATION
  Report Type: 
  Country: None (occurrence: None)
  Receive Date: 20070410
  Receipt Date: 20070410
  Transmission Date: 20071010
  Serious: Yes (Life-Threatening, Other)
  Sender: FDA-Public Use
  Company Number: None

PATIENT
  Age: 36 Year
  Sex: Female
  Weight: 84.8226 kg

DRUGS (2)
  1. TEGASEROD [Suspect]
     Indication: CONSTIPATION
     Dosage: 1 TABLET  BID  PO
     Route: 048
     Dates: start: 20070223, end: 20070406
  2. TEGASEROD [Suspect]
     Indication: DYSPEPSIA
     Dosage: 1 TABLET  BID  PO
     Route: 048
     Dates: start: 20070223, end: 20070406

REACTIONS (2)
  - DRUG EXPOSURE DURING PREGNANCY [None]
  - VAGINAL HAEMORRHAGE [None]
